FAERS Safety Report 10021392 (Version 1)
Quarter: 2014Q1

REPORT INFORMATION
  Report Type: Spontaneous
  Country: US (occurrence: US)
  Receive Date: 20140319
  Receipt Date: 20140319
  Transmission Date: 20141002
  Serious: No
  Sender: FDA-Public Use
  Company Number: US-009507513-1403USA006450

PATIENT
  Sex: Female

DRUGS (1)
  1. JANUMET [Suspect]
     Dosage: 1 DF, BID
     Route: 048
     Dates: start: 201310

REACTIONS (2)
  - Dysphagia [Unknown]
  - Wrong technique in drug usage process [Unknown]
